FAERS Safety Report 11924316 (Version 8)
Quarter: 2016Q1

REPORT INFORMATION
  Report Type: Spontaneous
  Country: US (occurrence: US)
  Receive Date: 20160118
  Receipt Date: 20160321
  Transmission Date: 20160526
  Serious: Yes (Hospitalization)
  Sender: FDA-Public Use
  Company Number: US-PFIZER INC-2015474114

PATIENT
  Age: 53 Year
  Sex: Female

DRUGS (19)
  1. GABAPENTIN. [Suspect]
     Active Substance: GABAPENTIN
     Indication: HYPOAESTHESIA
     Dosage: 100 MG, 3X/DAY
  2. LAMOTRIGINE. [Suspect]
     Active Substance: LAMOTRIGINE
     Dosage: 1100 MG, DAILY (AT NIGHT)
     Dates: start: 200907
  3. AMITRIPTYLINE [Suspect]
     Active Substance: AMITRIPTYLINE
     Indication: ANXIETY
     Dosage: 1 MG, DAILY (AT NIGHT)
     Dates: start: 201111
  4. MONTELUKAST [Suspect]
     Active Substance: MONTELUKAST SODIUM
     Indication: HYPERSENSITIVITY
     Dosage: 15 MG, DAILY (AT NIGHT)
     Dates: start: 20120715
  5. GABAPENTIN. [Suspect]
     Active Substance: GABAPENTIN
     Indication: POST-TRAUMATIC NECK SYNDROME
     Dosage: 600 MG, 3X/DAY
  6. BACLOFEN. [Suspect]
     Active Substance: BACLOFEN
     Indication: PAIN
     Dosage: 10 MG, 3X/DAY (1X 8 HOURS)
     Dates: start: 20150730
  7. BACLOFEN. [Suspect]
     Active Substance: BACLOFEN
     Indication: POST-TRAUMATIC NECK SYNDROME
     Dosage: 20 MG, UNK
  8. OMEPRAZOLE. [Suspect]
     Active Substance: OMEPRAZOLE
     Indication: ULCER
     Dosage: 120 MG, 1X/DAY
     Dates: start: 199611
  9. BIOFREEZE [Concomitant]
     Active Substance: MENTHOL
     Dosage: UNK
  10. GABAPENTIN. [Suspect]
     Active Substance: GABAPENTIN
     Indication: BACK PAIN
     Dosage: 300 MG, 2X/DAY
  11. GABAPENTIN. [Suspect]
     Active Substance: GABAPENTIN
     Indication: NECK PAIN
     Dosage: 600 MG, DAILY (AT NIGHT)
  12. GABAPENTIN. [Suspect]
     Active Substance: GABAPENTIN
     Dosage: 300 MG, DAILY (AT NIGHT)
     Dates: start: 20160120
  13. GABAPENTIN. [Suspect]
     Active Substance: GABAPENTIN
     Indication: PAIN IN EXTREMITY
     Dosage: 300 MG, 3X/DAY
  14. NABUMETONE. [Suspect]
     Active Substance: NABUMETONE
     Indication: POST-TRAUMATIC NECK SYNDROME
     Dosage: 750 MG, 2X/DAY
     Dates: start: 20150730
  15. FLONASE [Suspect]
     Active Substance: FLUTICASONE PROPIONATE
     Indication: HYPERSENSITIVITY
     Dosage: 1 10MG EVERY DAY, 2X50 MG)
     Dates: start: 20120715
  16. GABAPENTIN. [Suspect]
     Active Substance: GABAPENTIN
     Indication: NEURALGIA
     Dosage: 100 MG, 2X/DAY
  17. GABAPENTIN. [Suspect]
     Active Substance: GABAPENTIN
     Indication: BACK PAIN
     Dosage: 300 MG, AT NIGHT
  18. GABAPENTIN. [Suspect]
     Active Substance: GABAPENTIN
     Dosage: 90 MG, 3X/DAY
  19. LEVOCETIRIZINE [Suspect]
     Active Substance: LEVOCETIRIZINE
     Indication: HYPERSENSITIVITY
     Dosage: 0.5 MG, DAILY (MORNING)
     Dates: start: 20120715

REACTIONS (9)
  - Pain [Not Recovered/Not Resolved]
  - Sedation [Not Recovered/Not Resolved]
  - Chromaturia [Unknown]
  - Dizziness [Not Recovered/Not Resolved]
  - Feeling drunk [Unknown]
  - Impaired work ability [Unknown]
  - Impaired driving ability [Unknown]
  - Drug ineffective for unapproved indication [Not Recovered/Not Resolved]
  - Feeling abnormal [Unknown]

NARRATIVE: CASE EVENT DATE: 201501
